FAERS Safety Report 4304236-X (Version None)
Quarter: 2004Q1

REPORT INFORMATION
  Report Type: 
  Country: None (occurrence: None)
  Receive Date: 20040225
  Receipt Date: 20040213
  Transmission Date: 20041129
  Serious: Yes (Hospitalization)
  Sender: FDA-Public Use
  Company Number: WAES 0402AUS00090

PATIENT
  Age: 63 Year
  Sex: Female

DRUGS (7)
  1. GEMFIBROZIL [Suspect]
     Dates: start: 19960101, end: 19980609
  2. GLICLAZIDE [Concomitant]
     Dates: end: 19980609
  3. INSULIN [Concomitant]
     Route: 058
  4. METFORMIN HYDROCHLORIDE [Concomitant]
  5. OXYBUTYNIN CHLORIDE [Concomitant]
  6. PREDNISONE [Suspect]
     Dates: start: 19980605, end: 19980609
  7. ZOCOR [Suspect]
     Route: 048
     Dates: start: 19960101, end: 19980609

REACTIONS (5)
  - BLOOD CREATINE PHOSPHOKINASE INCREASED [None]
  - CARDIAC FAILURE CONGESTIVE [None]
  - MUSCULAR WEAKNESS [None]
  - MYALGIA [None]
  - PARESIS [None]
